FAERS Safety Report 20681500 (Version 1)
Quarter: 2022Q2

REPORT INFORMATION
  Report Type: Spontaneous
  Country: FR (occurrence: FR)
  Receive Date: 20220406
  Receipt Date: 20220406
  Transmission Date: 20220720
  Serious: Yes (Hospitalization)
  Sender: FDA-Public Use
  Company Number: None

PATIENT
  Age: 74 Year
  Sex: Female

DRUGS (6)
  1. LOVENOX [Suspect]
     Active Substance: ENOXAPARIN SODIUM
     Indication: COVID-19 pneumonia
     Route: 048
     Dates: start: 20220214, end: 20220224
  2. RITONAVIR [Suspect]
     Active Substance: RITONAVIR
     Indication: COVID-19 pneumonia
     Route: 048
     Dates: start: 20220215, end: 20220223
  3. RAMIPRIL [Concomitant]
     Active Substance: RAMIPRIL
     Dosage: 1.25 MG, TOTAL
     Route: 048
     Dates: start: 20220117
  4. CEFTRIAXONE SODIUM [Concomitant]
     Active Substance: CEFTRIAXONE SODIUM
     Route: 058
     Dates: start: 20220214, end: 20220222
  5. FUROSEMIDE [Concomitant]
     Active Substance: FUROSEMIDE
     Dosage: 20 MG, TOTAL
     Dates: start: 20220117
  6. FLAGYL [Concomitant]
     Active Substance: METRONIDAZOLE\METRONIDAZOLE HYDROCHLORIDE
     Route: 058
     Dates: start: 20220215, end: 20220222

REACTIONS (2)
  - Condition aggravated [Not Recovered/Not Resolved]
  - Thrombocytosis [Not Recovered/Not Resolved]
